FAERS Safety Report 25135550 (Version 1)
Quarter: 2025Q1

REPORT INFORMATION
  Report Type: Spontaneous
  Country: IN (occurrence: IN)
  Receive Date: 20250328
  Receipt Date: 20250328
  Transmission Date: 20250409
  Serious: Yes (Other)
  Sender: BIOCON
  Company Number: IN-BIOCON BIOLOGICS LIMITED-BBL2025001695

PATIENT

DRUGS (13)
  1. INSULIN GLARGINE [Suspect]
     Active Substance: INSULIN GLARGINE
     Indication: Type 1 diabetes mellitus
     Dosage: UNK UNK, QD, (INJECTION, 20 UNITS EVERY NIGHT)
     Route: 058
  2. INSULIN GLARGINE [Suspect]
     Active Substance: INSULIN GLARGINE
  3. INSULIN HUMAN [Suspect]
     Active Substance: INSULIN HUMAN
     Indication: Type 1 diabetes mellitus
     Dosage: UNK, TID
     Route: 058
  4. MEROPENEM [Concomitant]
     Active Substance: MEROPENEM
     Indication: Bacterial infection
     Dosage: 500 MG, TID
     Route: 042
  5. TEICOPLANIN [Concomitant]
     Active Substance: TEICOPLANIN
     Indication: Bacterial infection
     Route: 042
  6. TIGECYCLINE [Concomitant]
     Active Substance: TIGECYCLINE
     Indication: Bacterial infection
     Route: 042
  7. LINEZOLID [Concomitant]
     Active Substance: LINEZOLID
     Indication: Bacterial infection
     Route: 042
  8. COLISTIN [Concomitant]
     Active Substance: COLISTIN
     Indication: Bacterial infection
     Dosage: THREE MILLION UNITS, TID
     Route: 042
  9. LEVONADIFLOXACIN [Concomitant]
     Indication: Bacterial infection
     Route: 042
  10. AZTREONAM [Concomitant]
     Active Substance: AZTREONAM
     Indication: Bacterial infection
     Dosage: 1 G, TID
     Route: 042
  11. POLYMYXIN B [Concomitant]
     Active Substance: POLYMYXIN B
     Indication: Bacterial infection
     Route: 042
  12. ANIDULAFUNGIN [Concomitant]
     Active Substance: ANIDULAFUNGIN
     Indication: Candida infection
     Dosage: 100 MG, QD
     Route: 042
  13. AMPHOTERICIN B [Concomitant]
     Active Substance: AMPHOTERICIN B
     Indication: Candida infection
     Dosage: 200 MG, QD
     Route: 042

REACTIONS (2)
  - Diabetic ketoacidosis [Unknown]
  - Product dose omission issue [Unknown]
